FAERS Safety Report 7472263-X (Version None)
Quarter: 2011Q2

REPORT INFORMATION
  Report Type: 
  Country: None (occurrence: None)
  Receive Date: 20110511
  Receipt Date: 20110429
  Transmission Date: 20111010
  Serious: Yes (Hospitalization)
  Sender: FDA-Public Use
  Company Number: CA-JNJFOC-20110106469

PATIENT
  Age: 70 Year
  Sex: Female
  Weight: 97 kg

DRUGS (15)
  1. DIOVAN HCT [Concomitant]
     Indication: HYPERTENSION
  2. METHOTREXATE [Concomitant]
     Route: 048
  3. NOVOSEMIDE [Concomitant]
     Indication: HYPERTENSION
  4. CELEBREX [Concomitant]
     Route: 048
  5. LYRICA [Concomitant]
     Route: 048
  6. SYNTHROID [Concomitant]
     Indication: HYPOTHYROIDISM
  7. SIMPONI [Suspect]
     Indication: RHEUMATOID ARTHRITIS
     Route: 058
  8. APO-FOLIC [Concomitant]
     Indication: PROPHYLAXIS
     Route: 048
  9. DOCUSATE SODIUM [Concomitant]
     Indication: CONSTIPATION
  10. ADALAT CC [Concomitant]
     Indication: HYPERTENSION
  11. SENNA-MINT WAF [Concomitant]
     Indication: CONSTIPATION
  12. METFORMIN HCL [Concomitant]
     Indication: DIABETES MELLITUS
  13. FENOFIBRATE [Concomitant]
     Indication: HYPERCHOLESTEROLAEMIA
  14. NOVO-GESIC [Concomitant]
     Route: 048
  15. NEXIUM [Concomitant]
     Indication: GASTROINTESTINAL DISORDER THERAPY

REACTIONS (1)
  - PNEUMONIA [None]
